FAERS Safety Report 6364280-8 (Version None)
Quarter: 2009Q3

REPORT INFORMATION
  Report Type: 
  Country: None (occurrence: None)
  Receive Date: 20090919
  Receipt Date: 20090720
  Transmission Date: 20100115
  Serious: No
  Sender: FDA-Public Use
  Company Number: US-ABBOTT-09P-163-0586792-00

PATIENT
  Sex: Female
  Weight: 60.836 kg

DRUGS (2)
  1. HUMIRA [Suspect]
     Indication: RHEUMATOID ARTHRITIS
     Dates: start: 20090701
  2. CLARITHROMYCIN [Suspect]
     Indication: COUGH

REACTIONS (7)
  - ARTHRALGIA [None]
  - COUGH [None]
  - DRUG INEFFECTIVE [None]
  - DYSGEUSIA [None]
  - PAIN IN EXTREMITY [None]
  - PRURITUS [None]
  - RHEUMATOID ARTHRITIS [None]
